FAERS Safety Report 17698661 (Version 1)
Quarter: 2020Q2

REPORT INFORMATION
  Report Type: Spontaneous
  Country: IT (occurrence: IT)
  Receive Date: 20200423
  Receipt Date: 20200423
  Transmission Date: 20200714
  Serious: Yes (Other)
  Sender: FDA-Public Use
  Company Number: IT-ROCHE-2589317

PATIENT
  Age: 49 Year
  Sex: Male

DRUGS (11)
  1. CAPECITABINE. [Suspect]
     Active Substance: CAPECITABINE
     Indication: ACINAR CELL CARCINOMA OF PANCREAS
     Dosage: FOR EIGHT CYCLES
     Route: 065
  2. GEMCITABINE. [Suspect]
     Active Substance: GEMCITABINE
     Dosage: REINTRODUCED
     Route: 065
  3. IRINOTECAN [Suspect]
     Active Substance: IRINOTECAN
     Indication: ACINAR CELL CARCINOMA OF PANCREAS
     Dosage: ON DAY 1
     Route: 065
  4. GEMCITABINE. [Suspect]
     Active Substance: GEMCITABINE
     Indication: ACINAR CELL CARCINOMA OF PANCREAS
     Route: 065
  5. GEMCITABINE. [Suspect]
     Active Substance: GEMCITABINE
     Route: 065
     Dates: end: 201211
  6. CAPECITABINE. [Suspect]
     Active Substance: CAPECITABINE
     Dosage: ANOTHER 8 CYCLES
     Route: 065
     Dates: end: 201107
  7. CAPECITABINE. [Suspect]
     Active Substance: CAPECITABINE
     Dosage: ON DAYS 1 TO 15 EVERY 21 DAYS
     Route: 065
     Dates: start: 201211
  8. CAPECITABINE. [Suspect]
     Active Substance: CAPECITABINE
     Route: 065
     Dates: end: 201507
  9. GEMCITABINE. [Suspect]
     Active Substance: GEMCITABINE
     Dosage: EIGHT CYCLES
     Route: 065
  10. OXALIPLATIN. [Concomitant]
     Active Substance: OXALIPLATIN
     Indication: ACINAR CELL CARCINOMA OF PANCREAS
     Route: 065
     Dates: end: 200910
  11. GEMCITABINE. [Suspect]
     Active Substance: GEMCITABINE
     Route: 065
     Dates: start: 201107

REACTIONS (3)
  - Bone marrow toxicity [Unknown]
  - Thrombocytopenia [Unknown]
  - Anaemia [Unknown]
